FAERS Safety Report 8454686-5 (Version None)
Quarter: 2012Q2

REPORT INFORMATION
  Report Type: 
  Country: None (occurrence: None)
  Receive Date: 20120615
  Receipt Date: 20120615
  Transmission Date: 20120825
  Serious: No
  Sender: FDA-Public Use
  Company Number: None

PATIENT
  Sex: Male
  Weight: 89 kg

DRUGS (2)
  1. LUPRON DEPOT [Suspect]
     Indication: PROSTATE CANCER
     Dosage: 22.5 3-MONTH IM
     Route: 030
     Dates: start: 20110722
  2. LUPRON DEPOT [Suspect]
     Indication: PROSTATE CANCER
     Dosage: 22.5 3-MONTH IM
     Route: 030
     Dates: start: 20111018

REACTIONS (30)
  - NIGHT SWEATS [None]
  - CHEST DISCOMFORT [None]
  - HAEMOGLOBIN DECREASED [None]
  - VITAMIN B COMPLEX DEFICIENCY [None]
  - HOT FLUSH [None]
  - BREAST ENLARGEMENT [None]
  - MUSCULOSKELETAL CHEST PAIN [None]
  - ANAEMIA [None]
  - HYPERCALCAEMIA [None]
  - HYPERPARATHYROIDISM SECONDARY [None]
  - SLEEP APNOEA SYNDROME [None]
  - HEADACHE [None]
  - WEIGHT INCREASED [None]
  - TACHYCARDIA [None]
  - SUICIDE ATTEMPT [None]
  - CHEST PAIN [None]
  - SYSTOLIC HYPERTENSION [None]
  - PROSTATE CANCER [None]
  - SMALL INTESTINAL BACTERIAL OVERGROWTH [None]
  - IDIOSYNCRATIC DRUG REACTION [None]
  - TINNITUS [None]
  - CHILLS [None]
  - ANXIETY [None]
  - PALPITATIONS [None]
  - HEART RATE IRREGULAR [None]
  - NEUROPATHY PERIPHERAL [None]
  - DIABETES MELLITUS [None]
  - DEPRESSION [None]
  - DIARRHOEA [None]
  - BLOOD CREATINE INCREASED [None]
